FAERS Safety Report 11748379 (Version 4)
Quarter: 2016Q2

REPORT INFORMATION
  Report Type: Spontaneous
  Country: US (occurrence: US)
  Receive Date: 20151117
  Receipt Date: 20160406
  Transmission Date: 20160815
  Serious: Yes (Other)
  Sender: FDA-Public Use
  Company Number: US-ASTRAZENECA-2013SE13452

PATIENT
  Age: 794 Month
  Sex: Female
  Weight: 92.5 kg

DRUGS (54)
  1. FOLIC ACID. [Concomitant]
     Active Substance: FOLIC ACID
     Route: 048
     Dates: start: 20080130
  2. NEURONTIN [Concomitant]
     Active Substance: GABAPENTIN
     Route: 048
     Dates: start: 20071015
  3. PREVACID [Concomitant]
     Active Substance: LANSOPRAZOLE
     Route: 048
     Dates: start: 20080130
  4. ALLOPURINOL. [Concomitant]
     Active Substance: ALLOPURINOL
     Dates: start: 20070924
  5. ACTOS [Concomitant]
     Active Substance: PIOGLITAZONE HYDROCHLORIDE
     Dates: start: 20070315
  6. JANUVIA [Concomitant]
     Active Substance: SITAGLIPTIN PHOSPHATE
     Route: 048
     Dates: start: 20080130
  7. PROMETHAZINE [Concomitant]
     Active Substance: PROMETHAZINE\PROMETHAZINE HYDROCHLORIDE
     Dates: start: 20080226
  8. SPIRONOLACTONE. [Concomitant]
     Active Substance: SPIRONOLACTONE
     Dates: start: 20090928
  9. BENZONATATE. [Concomitant]
     Active Substance: BENZONATATE
     Dates: start: 20051026
  10. TRAMADOL HYDROCHLORIDE. [Concomitant]
     Active Substance: TRAMADOL HYDROCHLORIDE
     Dates: start: 20150227
  11. STARLIX [Concomitant]
     Active Substance: NATEGLINIDE
     Route: 048
     Dates: start: 20050906
  12. NITROGLYCERIN. [Concomitant]
     Active Substance: NITROGLYCERIN
     Route: 060
     Dates: start: 20101129
  13. DIGITEK [Concomitant]
     Active Substance: DIGOXIN
     Dates: start: 20070226
  14. LEVAQUIN [Concomitant]
     Active Substance: LEVOFLOXACIN
     Dates: start: 20110106
  15. CYCLOBENZAPRINE [Concomitant]
     Active Substance: CYCLOBENZAPRINE
     Dates: start: 20120131
  16. METHYLPREDNISOLONE. [Concomitant]
     Active Substance: METHYLPREDNISOLONE
     Dates: start: 20120202
  17. NAPROXEN. [Concomitant]
     Active Substance: NAPROXEN
     Dates: start: 20051021
  18. LIPITOR [Concomitant]
     Active Substance: ATORVASTATIN CALCIUM
     Dates: start: 200303, end: 200311
  19. PLAVIX [Concomitant]
     Active Substance: CLOPIDOGREL BISULFATE
     Route: 048
     Dates: start: 20070614
  20. KCL [Concomitant]
     Active Substance: POTASSIUM CHLORIDE
     Route: 048
     Dates: start: 20080130
  21. NORVASC [Concomitant]
     Active Substance: AMLODIPINE BESYLATE
     Dates: start: 20101129
  22. MUCINEX [Concomitant]
     Active Substance: GUAIFENESIN
     Dates: start: 20081015
  23. ZITHROMAX [Concomitant]
     Active Substance: AZITHROMYCIN DIHYDRATE
     Dates: start: 1995
  24. CRESTOR [Suspect]
     Active Substance: ROSUVASTATIN CALCIUM
     Indication: BLOOD CHOLESTEROL INCREASED
     Route: 048
     Dates: start: 199501
  25. CRESTOR [Suspect]
     Active Substance: ROSUVASTATIN CALCIUM
     Indication: BLOOD CHOLESTEROL INCREASED
     Route: 048
     Dates: start: 20051111
  26. CRESTOR [Suspect]
     Active Substance: ROSUVASTATIN CALCIUM
     Indication: BLOOD CHOLESTEROL INCREASED
     Route: 048
     Dates: start: 20071106
  27. AMBIEN [Concomitant]
     Active Substance: ZOLPIDEM TARTRATE
     Route: 048
     Dates: start: 20080130
  28. ASA/ASPIRIN [Concomitant]
     Route: 048
     Dates: start: 20080130
  29. COREG [Concomitant]
     Active Substance: CARVEDILOL
     Route: 048
     Dates: start: 20080130
  30. ZETIA [Concomitant]
     Active Substance: EZETIMIBE
     Route: 048
     Dates: start: 20070815
  31. PROTONIX/PANTOPRAZOLE SODIUM [Concomitant]
     Route: 048
     Dates: start: 20110502
  32. LORAZEPAM. [Concomitant]
     Active Substance: LORAZEPAM
     Dates: start: 20071101
  33. MIRTAZAPINE. [Concomitant]
     Active Substance: MIRTAZAPINE
     Dates: start: 20080227
  34. CRESTOR [Suspect]
     Active Substance: ROSUVASTATIN CALCIUM
     Indication: BLOOD CHOLESTEROL INCREASED
     Route: 048
     Dates: start: 20120209
  35. GLIPIZIDE. [Concomitant]
     Active Substance: GLIPIZIDE
     Route: 048
     Dates: start: 20080130
  36. METOCLOPRAMIDE. [Concomitant]
     Active Substance: METOCLOPRAMIDE
     Dates: start: 20080227
  37. FLOVENT [Concomitant]
     Active Substance: FLUTICASONE PROPIONATE
     Dates: start: 1995
  38. ATACAND [Concomitant]
     Active Substance: CANDESARTAN CILEXETIL
     Route: 048
     Dates: start: 20070723
  39. ISOSORBIDE. [Concomitant]
     Active Substance: ISOSORBIDE
     Route: 048
     Dates: start: 20070815
  40. VITAMIN D [Concomitant]
     Active Substance: CHOLECALCIFEROL
     Dates: start: 20110502
  41. ALPRAZOLAM. [Concomitant]
     Active Substance: ALPRAZOLAM
     Dates: start: 20070703
  42. DEXILANT [Concomitant]
     Active Substance: DEXLANSOPRAZOLE
     Dates: start: 20111021
  43. CILOSTAZOL. [Concomitant]
     Active Substance: CILOSTAZOL
     Dates: start: 20120623
  44. CRESTOR [Suspect]
     Active Substance: ROSUVASTATIN CALCIUM
     Indication: BLOOD CHOLESTEROL INCREASED
     Route: 048
     Dates: start: 200411, end: 201204
  45. LASIX [Concomitant]
     Active Substance: FUROSEMIDE
     Route: 048
     Dates: start: 20070815
  46. CREON [Concomitant]
     Active Substance: PANCRELIPASE AMYLASE\PANCRELIPASE LIPASE\PANCRELIPASE PROTEASE
     Route: 048
     Dates: start: 20080130
  47. VICODIN [Concomitant]
     Active Substance: ACETAMINOPHEN\HYDROCODONE BITARTRATE
     Dosage: 5/500. AS REQUIRED
     Route: 048
     Dates: start: 20080130
  48. AMITIZA [Concomitant]
     Active Substance: LUBIPROSTONE
     Dates: start: 20101129
  49. PROCHLORPERAZINE. [Concomitant]
     Active Substance: PROCHLORPERAZINE
     Dates: start: 20080226
  50. RANITIDINE. [Concomitant]
     Active Substance: RANITIDINE
     Dates: start: 20100323
  51. IBUPROFEN. [Concomitant]
     Active Substance: IBUPROFEN
     Dates: start: 20120202
  52. CITALOPRAM HYDROBROMIDE. [Concomitant]
     Active Substance: CITALOPRAM HYDROBROMIDE
     Dates: start: 20150521
  53. VIOXX [Concomitant]
     Active Substance: ROFECOXIB
     Dates: start: 1995
  54. TOPROL XL [Concomitant]
     Active Substance: METOPROLOL SUCCINATE
     Dates: start: 1995

REACTIONS (16)
  - Ischaemic stroke [Unknown]
  - Obesity [Unknown]
  - Cardiac failure congestive [Unknown]
  - Hypertensive heart disease [Unknown]
  - Myocardial infarction [Unknown]
  - Coronary artery disease [Unknown]
  - Ischaemic cardiomyopathy [Unknown]
  - Angina pectoris [Unknown]
  - Syncope [Unknown]
  - Cardiovascular disorder [Not Recovered/Not Resolved]
  - Arrhythmia [Unknown]
  - Blood triglycerides increased [Not Recovered/Not Resolved]
  - Left ventricular hypertrophy [Unknown]
  - Type 2 diabetes mellitus [Not Recovered/Not Resolved]
  - Polycystic ovaries [Unknown]
  - Hypertension [Unknown]

NARRATIVE: CASE EVENT DATE: 200301
